FAERS Safety Report 8129887-6 (Version None)
Quarter: 2012Q1

REPORT INFORMATION
  Report Type: 
  Country: None (occurrence: None)
  Receive Date: 20120210
  Receipt Date: 20120119
  Transmission Date: 20120608
  Serious: No
  Sender: FDA-Public Use
  Company Number: US-COVIDIEN/TYCO HEALTHCARE/MALLINCKRODT-T201200473

PATIENT
  Sex: Female
  Weight: 72.562 kg

DRUGS (5)
  1. TRAMADOL HCL [Concomitant]
     Indication: PAIN
     Dosage: 1-2 TABS PRN QD
     Route: 048
  2. PENNSAID [Suspect]
     Indication: OSTEOARTHRITIS
     Dosage: 40 GTT, QID
     Dates: start: 20120108, end: 20120118
  3. NEXIUM [Concomitant]
     Indication: GASTROINTESTINAL DISORDER
     Dosage: 40 MG, QD
     Route: 048
  4. ASPIRIN [Concomitant]
     Indication: PROPHYLAXIS
     Dosage: 81 MG, QD
     Route: 048
  5. TEMAZEPAM [Concomitant]
     Indication: SLEEP DISORDER
     Dosage: 15 MG QHS
     Route: 048

REACTIONS (2)
  - NAUSEA [None]
  - ABDOMINAL DISCOMFORT [None]
